FAERS Safety Report 5223487-3 (Version None)
Quarter: 2007Q1

REPORT INFORMATION
  Report Type: 
  Country: None (occurrence: None)
  Receive Date: 20070125
  Receipt Date: 20070116
  Transmission Date: 20070707
  Serious: Yes (Other)
  Sender: FDA-Public Use
  Company Number: 15539

PATIENT
  Age: 59 Year
  Sex: Male

DRUGS (1)
  1. CABOPLATIN [Suspect]
     Dosage: 580 MG PER_CYCLE IV
     Route: 042

REACTIONS (1)
  - RESPIRATORY DISTRESS [None]
